FAERS Safety Report 9681032 (Version 3)
Quarter: 2014Q1

REPORT INFORMATION
  Report Type: Spontaneous
  Country: US (occurrence: US)
  Receive Date: 20131111
  Receipt Date: 20140214
  Transmission Date: 20141002
  Serious: Yes (Hospitalization)
  Sender: FDA-Public Use
  Company Number: US-B.I. PHARMACEUTICALS,INC./RIDGEFIELD-2013-BI-35957BP

PATIENT
  Sex: Male
  Weight: 77.56 kg

DRUGS (10)
  1. PRADAXA [Suspect]
     Indication: ATRIAL FIBRILLATION
     Dosage: 300 MG
     Route: 048
     Dates: start: 20110825, end: 20111021
  2. ALENDRONATE [Concomitant]
     Dosage: 10 MG
  3. ASPIRIN [Concomitant]
     Dosage: 325 MG
     Route: 048
     Dates: start: 1993
  4. ATENOLOL [Concomitant]
     Dosage: 50 MG
  5. LASIX [Concomitant]
     Dosage: 40 MG
     Dates: start: 2011
  6. GLIPIZIDE [Concomitant]
     Dosage: 10 MG
     Route: 048
     Dates: start: 2005
  7. POTASSIUM [Concomitant]
     Dosage: 40 MEQ
     Route: 048
     Dates: start: 2010
  8. ZOCOR [Concomitant]
     Dosage: 10 MG
     Route: 048
     Dates: start: 2005
  9. XALATAN [Concomitant]
  10. SPIRONOLACTONE [Concomitant]
     Dosage: 25 MG
     Route: 048
     Dates: start: 2010

REACTIONS (1)
  - Lower gastrointestinal haemorrhage [Unknown]
